FAERS Safety Report 14004292 (Version 3)
Quarter: 2018Q1

REPORT INFORMATION
  Report Type: Spontaneous
  Country: US (occurrence: US)
  Receive Date: 20170922
  Receipt Date: 20180310
  Transmission Date: 20180508
  Serious: No
  Sender: FDA-Public Use
  Company Number: US-JNJFOC-20170721124

PATIENT
  Sex: Male
  Weight: 90.72 kg

DRUGS (2)
  1. INVOKANA [Suspect]
     Active Substance: CANAGLIFLOZIN
     Indication: TYPE 2 DIABETES MELLITUS
     Route: 048
     Dates: start: 201706, end: 201708
  2. METFORMIN [Concomitant]
     Active Substance: METFORMIN HYDROCHLORIDE
     Dosage: 1 IN AM AND 1 AT NIGHT
     Route: 065

REACTIONS (3)
  - Nausea [Not Recovered/Not Resolved]
  - Abdominal pain [Recovered/Resolved]
  - Product label issue [Unknown]

NARRATIVE: CASE EVENT DATE: 2017
